FAERS Safety Report 9568269 (Version 2)
Quarter: 2014Q1

REPORT INFORMATION
  Report Type: Spontaneous
  Country: US (occurrence: US)
  Receive Date: 20130930
  Receipt Date: 20140225
  Transmission Date: 20141002
  Serious: No
  Sender: FDA-Public Use
  Company Number: US-AMGEN-USASP2013055368

PATIENT
  Age: 42 Year
  Sex: Male

DRUGS (1)
  1. ENBREL [Suspect]
     Indication: PSORIASIS
     Dosage: 50 MG, QWK
     Route: 058
     Dates: start: 20130618, end: 20131206

REACTIONS (3)
  - Liver disorder [Recovered/Resolved]
  - Laboratory test abnormal [Recovered/Resolved]
  - Transaminases increased [Not Recovered/Not Resolved]
